FAERS Safety Report 7415993-8 (Version None)
Quarter: 2011Q2

REPORT INFORMATION
  Report Type: 
  Country: None (occurrence: None)
  Receive Date: 20110414
  Receipt Date: 20110401
  Transmission Date: 20111010
  Serious: No
  Sender: FDA-Public Use
  Company Number: US-B.I. PHARMACEUTICALS,INC./RIDGEFIELD-2011-BP-09778BP

PATIENT
  Sex: Male

DRUGS (4)
  1. ACIFEX [Concomitant]
     Indication: GASTROOESOPHAGEAL REFLUX DISEASE
  2. METOPROLOL TARTRATE [Concomitant]
     Indication: ATRIAL FIBRILLATION
  3. PRADAXA [Suspect]
     Dosage: 300 MG
     Route: 048
     Dates: start: 20110201
  4. AMAPROBMATE [Concomitant]
     Indication: NERVOUSNESS

REACTIONS (2)
  - NERVOUSNESS [None]
  - GASTROOESOPHAGEAL REFLUX DISEASE [None]
